FAERS Safety Report 5097883-1 (Version None)
Quarter: 2006Q3

REPORT INFORMATION
  Report Type: 
  Country: None (occurrence: None)
  Receive Date: 20060905
  Receipt Date: 20060905
  Transmission Date: 20061208
  Serious: Yes (Life-Threatening, Other)
  Sender: FDA-Public Use
  Company Number: None

PATIENT
  Age: 56 Year
  Sex: Male
  Weight: 138.3471 kg

DRUGS (1)
  1. ACTOS [Suspect]
     Indication: DIABETES MELLITUS NON-INSULIN-DEPENDENT
     Dosage: 1 TAB DAILY PO
     Route: 048
     Dates: start: 20020606, end: 20060826

REACTIONS (15)
  - AMENORRHOEA [None]
  - ASTHENIA [None]
  - BURNING SENSATION [None]
  - DEPRESSION [None]
  - ECONOMIC PROBLEM [None]
  - ERYTHEMA [None]
  - EXTRASYSTOLES [None]
  - FATIGUE [None]
  - FEELING ABNORMAL [None]
  - GAIT DISTURBANCE [None]
  - LOSS OF EMPLOYMENT [None]
  - SWELLING [None]
  - TREATMENT NONCOMPLIANCE [None]
  - WEIGHT DECREASED [None]
  - WEIGHT INCREASED [None]
